FAERS Safety Report 6195981-2 (Version None)
Quarter: 2009Q2

REPORT INFORMATION
  Report Type: 
  Country: None (occurrence: None)
  Receive Date: 20090520
  Receipt Date: 20090518
  Transmission Date: 20091009
  Serious: Yes (Life-Threatening, Other)
  Sender: FDA-Public Use
  Company Number: PHHY2009ES18997

PATIENT
  Age: 59 Year

DRUGS (2)
  1. METHERGINE [Suspect]
     Indication: SURGERY
     Dosage: UNK
     Route: 042
     Dates: start: 20090508
  2. AUGMENTIN '125' [Concomitant]

REACTIONS (5)
  - BRADYCARDIA [None]
  - CARDIAC ARREST [None]
  - COMA [None]
  - ENDOTRACHEAL INTUBATION [None]
  - ISCHAEMIA [None]
